FAERS Safety Report 7744264-5 (Version None)
Quarter: 2011Q3

REPORT INFORMATION
  Report Type: 
  Country: None (occurrence: None)
  Receive Date: 20110912
  Receipt Date: 20110829
  Transmission Date: 20111222
  Serious: Yes (Other)
  Sender: FDA-Public Use
  Company Number: US-GENZYME-CAMP-1001845

PATIENT
  Sex: Female
  Weight: 110 kg

DRUGS (11)
  1. MULTI-VITAMIN [Concomitant]
     Indication: SUPPLEMENTATION THERAPY
     Dosage: UNK
     Route: 048
     Dates: start: 20090101
  2. SYNTHROID [Concomitant]
     Indication: HYPOTHYROIDISM
     Dosage: 125 MCG, QD
     Route: 048
     Dates: start: 20080201
  3. ASPIRIN [Concomitant]
     Indication: HEADACHE
     Dosage: UNK
     Route: 048
     Dates: start: 19890101
  4. ADVIL LIQUI-GELS [Concomitant]
     Indication: HEADACHE
     Dosage: 200 MG, PRN
     Route: 048
     Dates: start: 20100207
  5. ALEMTUZUMAB [Suspect]
     Dosage: 6 MG, QD
     Route: 042
     Dates: start: 20091012, end: 20091012
  6. NAPROXEN (ALEVE) [Concomitant]
     Indication: HEADACHE
     Dosage: 220 MG, PRN
     Route: 048
     Dates: start: 20100206
  7. ALEMTUZUMAB [Suspect]
     Indication: MULTIPLE SCLEROSIS
     Dosage: 12 MG, QD
     Route: 042
     Dates: start: 20090914, end: 20090917
  8. VITAMIN D [Concomitant]
     Indication: SUPPLEMENTATION THERAPY
     Dosage: 1000 U, QD
     Route: 048
     Dates: start: 20090901
  9. ALEMTUZUMAB [Suspect]
     Dosage: 12 MG, QDX3
     Route: 042
     Dates: start: 20101110, end: 20101112
  10. METHYLPREDNISOLONE [Concomitant]
     Indication: MULTIPLE SCLEROSIS
     Dosage: 1 G, QDX3
     Route: 042
     Dates: start: 20090914, end: 20090916
  11. METHYLPREDNISOLONE [Concomitant]
     Dosage: 1 G, QDX3
     Route: 042
     Dates: start: 20101110, end: 20101112

REACTIONS (1)
  - BASAL CELL CARCINOMA [None]
